FAERS Safety Report 6447564-4 (Version None)
Quarter: 2009Q4

REPORT INFORMATION
  Report Type: 
  Country: None (occurrence: None)
  Receive Date: 20091119
  Receipt Date: 20081110
  Transmission Date: 20100525
  Serious: Yes (Other)
  Sender: FDA-Public Use
  Company Number: US-AMGEN-QUU314906

PATIENT
  Sex: Female
  Weight: 60.8 kg

DRUGS (13)
  1. ENBREL [Suspect]
     Indication: RHEUMATOID ARTHRITIS
     Route: 058
     Dates: start: 20081007, end: 20081021
  2. ENBREL [Suspect]
     Indication: PSORIASIS
  3. NALFON [Concomitant]
  4. PREDNISONE [Concomitant]
  5. ACTONEL [Concomitant]
  6. SYNTHROID [Concomitant]
  7. LANOXIN [Concomitant]
  8. EFFEXOR [Concomitant]
  9. ABILIFY [Concomitant]
  10. SINEMET [Concomitant]
  11. REMERON [Concomitant]
  12. DILANTIN [Concomitant]
  13. LASIX [Concomitant]

REACTIONS (6)
  - AGGRESSION [None]
  - ARTHRALGIA [None]
  - BELLIGERENCE [None]
  - DEPRESSION [None]
  - NECK PAIN [None]
  - TREMOR [None]
